FAERS Safety Report 9007298 (Version 1)
Quarter: 2013Q1

REPORT INFORMATION
  Report Type: Report from Study
  Country: US (occurrence: US)
  Receive Date: 20130110
  Receipt Date: 20130110
  Transmission Date: 20140127
  Serious: Yes (Hospitalization, Other)
  Sender: FDA-Public Use
  Company Number: US-ABBOTT-13P-163-1031671-00

PATIENT
  Age: 45 None
  Sex: Female
  Weight: 74.91 kg

DRUGS (10)
  1. HUMIRA [Suspect]
     Indication: RHEUMATOID ARTHRITIS
     Dates: start: 201201, end: 201211
  2. MORPHINE [Concomitant]
     Indication: PRODUCT USED FOR UNKNOWN INDICATION
  3. NORCO [Concomitant]
     Indication: PRODUCT USED FOR UNKNOWN INDICATION
  4. ZOLOFT [Concomitant]
     Indication: PRODUCT USED FOR UNKNOWN INDICATION
  5. NAPROXEN [Concomitant]
     Indication: PRODUCT USED FOR UNKNOWN INDICATION
  6. NORTRIPTYLINE [Concomitant]
     Indication: PRODUCT USED FOR UNKNOWN INDICATION
  7. VITAMIN D [Concomitant]
     Indication: PRODUCT USED FOR UNKNOWN INDICATION
  8. VITAMIN B 12 [Concomitant]
     Indication: PRODUCT USED FOR UNKNOWN INDICATION
     Route: 050
  9. ROBAXIN [Concomitant]
     Indication: PRODUCT USED FOR UNKNOWN INDICATION
  10. NEURONTIN [Concomitant]
     Indication: PRODUCT USED FOR UNKNOWN INDICATION

REACTIONS (4)
  - Sleep apnoea syndrome [Recovered/Resolved]
  - Staphylococcal infection [Recovered/Resolved]
  - Axillary mass [Recovered/Resolved]
  - Scratch [Recovered/Resolved]
